FAERS Safety Report 6492923-7 (Version None)
Quarter: 2009Q4

REPORT INFORMATION
  Report Type: 
  Country: None (occurrence: None)
  Receive Date: 20091214
  Receipt Date: 20091204
  Transmission Date: 20100525
  Serious: Yes (Hospitalization)
  Sender: FDA-Public Use
  Company Number: PHHY2009DE07642

PATIENT
  Age: 67 Year
  Sex: Male
  Weight: 80 kg

DRUGS (11)
  1. DIOVAN HCT [Suspect]
     Indication: HYPERTENSION
     Dosage: 1 DF (160/12.5MG), QD
     Route: 048
     Dates: start: 20080601
  2. DIOVAN HCT [Suspect]
     Dosage: 1 DF (80/12.5MG), QD
     Dates: start: 20080810
  3. CYMBALTA [Suspect]
     Indication: DEPRESSION
     Dosage: 60 MG DAILY
     Route: 048
     Dates: start: 20080601
  4. PROPRANOLOL [Suspect]
     Indication: HYPERTENSION
     Dosage: 20 MG, BID
     Route: 048
     Dates: start: 20020101
  5. SPIRONOLACTONE [Suspect]
     Indication: CARDIAC FAILURE
     Dosage: 50 MG, QD
     Route: 048
     Dates: start: 20080601
  6. TORASEMIDE [Suspect]
     Indication: HYPERTENSION
     Dosage: 10 MG, QD
     Route: 048
     Dates: start: 20080101
  7. CELEBREX [Concomitant]
     Indication: SPINAL DISORDER
     Dosage: 200 MG, BID
     Route: 048
     Dates: start: 20080201
  8. METFORMIN HCL [Concomitant]
     Indication: TYPE 2 DIABETES MELLITUS
     Dosage: 850 MG, BID
     Route: 048
     Dates: start: 20080601
  9. SPIRIVA [Concomitant]
     Indication: CHRONIC OBSTRUCTIVE PULMONARY DISEASE
     Dosage: 18 UG, QD
     Dates: start: 20000101
  10. THIAMAZOLE [Concomitant]
     Indication: HYPOTHYROIDISM
     Dosage: 10 MG, QD
     Route: 048
     Dates: start: 19800101
  11. VIANI [Concomitant]
     Indication: CHRONIC OBSTRUCTIVE PULMONARY DISEASE
     Dosage: 1 DF, BID
     Dates: start: 20000101

REACTIONS (4)
  - DIZZINESS [None]
  - FALL [None]
  - HYPOTENSION [None]
  - LACERATION [None]
